FAERS Safety Report 12894380 (Version 7)
Quarter: 2020Q3

REPORT INFORMATION
  Report Type: Report from Study
  Country: US (occurrence: US)
  Receive Date: 20161028
  Receipt Date: 20181113
  Transmission Date: 20201105
  Serious: Yes (Hospitalization)
  Sender: FDA-Public Use
  Company Number: US-ROCHE-1847489

PATIENT
  Age: 59 Year
  Sex: Female
  Weight: 67.1 kg

DRUGS (33)
  1. SIMETHICONE (DIMETHICONE) [Concomitant]
     Active Substance: DIMETHICONE
     Indication: ABDOMINAL DISTENSION
     Dosage: AS NEEDED
     Route: 065
     Dates: start: 20160328, end: 20170411
  2. ACETAMINOPHEN. [Concomitant]
     Active Substance: ACETAMINOPHEN
     Indication: PYREXIA
  3. QVAR [Concomitant]
     Active Substance: BECLOMETHASONE DIPROPIONATE
     Indication: CHRONIC OBSTRUCTIVE PULMONARY DISEASE
     Dosage: DOSE: 80 MCG/ACT 2 PUFF
     Route: 065
     Dates: start: 20160623, end: 20170214
  4. MONTELUKAST [Concomitant]
     Active Substance: MONTELUKAST SODIUM
     Indication: CHRONIC OBSTRUCTIVE PULMONARY DISEASE
     Dosage: DOSE: 10MG QTTS
     Route: 048
     Dates: start: 20160831
  5. BENZONATATE. [Concomitant]
     Active Substance: BENZONATATE
     Indication: COUGH
     Route: 065
     Dates: start: 20161027, end: 20170108
  6. BACTRIM DS [Concomitant]
     Active Substance: SULFAMETHOXAZOLE\TRIMETHOPRIM
     Route: 065
     Dates: start: 20161031
  7. CEFPROZIL. [Concomitant]
     Active Substance: CEFPROZIL
     Indication: BRONCHITIS
     Route: 065
     Dates: start: 20170919
  8. PROTONIX [Concomitant]
     Active Substance: PANTOPRAZOLE SODIUM
     Indication: GASTROOESOPHAGEAL REFLUX DISEASE
     Dosage: PROTON PUMP INHIBITOR (PPI)
     Route: 065
     Dates: start: 20150209
  9. SOLU?MEDROL [Concomitant]
     Active Substance: METHYLPREDNISOLONE SODIUM SUCCINATE
     Indication: BRONCHITIS
     Route: 065
     Dates: start: 20161007, end: 20161007
  10. NASACORT AQ [Concomitant]
     Active Substance: TRIAMCINOLONE ACETONIDE
     Route: 065
     Dates: start: 20161027
  11. ZYRTEC [Concomitant]
     Active Substance: CETIRIZINE HYDROCHLORIDE
     Indication: BRONCHITIS
     Dosage: AS REQUIRED
     Route: 065
  12. ACYCLOVIR. [Concomitant]
     Active Substance: ACYCLOVIR
     Dosage: ANTI VIRAL
     Route: 065
     Dates: start: 20161031
  13. ACETAMINOPHEN. [Concomitant]
     Active Substance: ACETAMINOPHEN
     Indication: HEADACHE
     Route: 048
     Dates: start: 20160330
  14. ZOFRAN [Concomitant]
     Active Substance: ONDANSETRON HYDROCHLORIDE
     Indication: NAUSEA
     Route: 048
     Dates: start: 20160927
  15. ROCEPHIN [Concomitant]
     Active Substance: CEFTRIAXONE SODIUM
     Indication: BRONCHITIS
     Route: 065
     Dates: start: 20161007, end: 20161007
  16. XYZAL [Concomitant]
     Active Substance: LEVOCETIRIZINE DIHYDROCHLORIDE
     Indication: COUGH
     Dosage: QHS EVERY NIGHT AT BEDTIME
     Route: 048
     Dates: start: 20170818
  17. OBINUTUZUMAB. [Suspect]
     Active Substance: OBINUTUZUMAB
     Indication: FOLLICLE CENTRE LYMPHOMA, FOLLICULAR GRADE I, II, III RECURRENT
     Dosage: ON 30/AUG/2016, SHE RECEIVED THE MOST RECENT DOSE OF 1000 MG PRIOR TO EVENT ONSET?STARTING DOSE AS P
     Route: 042
     Dates: start: 20160329
  18. PHENERGAN [Concomitant]
     Active Substance: PROMETHAZINE HYDROCHLORIDE
     Indication: NAUSEA
     Dosage: ^EVERY SIX^ AS NEEDED (Q6* PRN)
     Route: 065
     Dates: start: 20150609
  19. INFLUENZA VACCINATION [Concomitant]
     Active Substance: INFLUENZA VIRUS VACCINE
     Indication: PROPHYLAXIS
     Route: 065
     Dates: start: 20161031, end: 20161031
  20. INFLUENZA VACCINATION [Concomitant]
     Active Substance: INFLUENZA VIRUS VACCINE
     Indication: IMMUNISATION
  21. METOPROLOL. [Concomitant]
     Active Substance: METOPROLOL
     Indication: CARDIOMYOPATHY
     Route: 065
     Dates: start: 20170317
  22. METOPROLOL SUCCINATE. [Concomitant]
     Active Substance: METOPROLOL SUCCINATE
     Indication: CARDIOMYOPATHY
     Dosage: REPORTED AS: METOPROLOL SUCC ER
     Route: 048
     Dates: start: 20160427, end: 20161208
  23. ANORO ELLIPTA [Concomitant]
     Active Substance: UMECLIDINIUM BROMIDE\VILANTEROL TRIFENATATE
     Indication: CHRONIC OBSTRUCTIVE PULMONARY DISEASE
     Dosage: DOSE: 62.5MCG/25MCG 1 PUFF
     Route: 055
     Dates: start: 20160831, end: 20170919
  24. MEDROL [Concomitant]
     Active Substance: METHYLPREDNISOLONE
     Indication: BRONCHITIS
     Route: 065
     Dates: start: 20161007, end: 20161012
  25. DOCUSATE SODIUM. [Concomitant]
     Active Substance: DOCUSATE SODIUM
     Indication: CONSTIPATION PROPHYLAXIS
     Route: 065
     Dates: start: 20161027, end: 20170606
  26. INCRUSE ELLIPTA [Concomitant]
     Active Substance: UMECLIDINIUM BROMIDE
     Indication: CHRONIC OBSTRUCTIVE PULMONARY DISEASE
     Dosage: 100?25MCG/INH, 1 PUFF DAILY
     Route: 065
     Dates: start: 20170919
  27. BREO ELLIPTA [Concomitant]
     Active Substance: FLUTICASONE FUROATE\VILANTEROL TRIFENATATE
     Indication: CHRONIC OBSTRUCTIVE PULMONARY DISEASE
     Dosage: 100?25MCG/INH 1 PUFF DAILY
     Route: 065
     Dates: start: 20170919
  28. VENETOCLAX. [Suspect]
     Active Substance: VENETOCLAX
     Indication: FOLLICLE CENTRE LYMPHOMA, FOLLICULAR GRADE I, II, III RECURRENT
     Dosage: ON 22/OCT/2016, SHE RECEIVED THE MOST RECENT DOSE 200 MG PRIOR TO THE EVENT ONSET?STARTING DOSE AS P
     Route: 048
     Dates: start: 20160329
  29. POLATUZUMAB VEDOTIN. [Suspect]
     Active Substance: POLATUZUMAB VEDOTIN
     Indication: FOLLICLE CENTRE LYMPHOMA, FOLLICULAR GRADE I, II, III RECURRENT
     Dosage: ON 12/JUL/2016, SHE RECEIVED THE MOST RECENT DOSE 85 MG PRIOR TO THE EVENT ONSET?STARTING DOSE AS PE
     Route: 042
     Dates: start: 20160329
  30. LISINOPRIL. [Concomitant]
     Active Substance: LISINOPRIL
     Route: 048
     Dates: start: 20161209
  31. MUCINEX D [Concomitant]
     Active Substance: GUAIFENESIN\PSEUDOEPHEDRINE HYDROCHLORIDE
     Indication: BRONCHITIS
     Dosage: ER AS REQUIRED
     Route: 065
     Dates: start: 20170215
  32. ZOFRAN [Concomitant]
     Active Substance: ONDANSETRON HYDROCHLORIDE
     Indication: VOMITING
  33. LEVAQUIN [Concomitant]
     Active Substance: LEVOFLOXACIN
     Indication: BRONCHITIS
     Route: 065
     Dates: start: 20161007, end: 20161016

REACTIONS (2)
  - Urinary tract infection [Recovered/Resolved]
  - Urinary tract infection [Recovered/Resolved]

NARRATIVE: CASE EVENT DATE: 20161023
